FAERS Safety Report 8325863-9 (Version None)
Quarter: 2012Q2

REPORT INFORMATION
  Report Type: 
  Country: None (occurrence: None)
  Receive Date: 20120501
  Receipt Date: 20120420
  Transmission Date: 20120825
  Serious: No
  Sender: FDA-Public Use
  Company Number: US-BIOGENIDEC-2012BI013824

PATIENT
  Sex: Female

DRUGS (3)
  1. TYSABRI [Suspect]
     Indication: MULTIPLE SCLEROSIS
     Route: 042
     Dates: start: 20091218, end: 20100827
  2. GILENYA [Concomitant]
  3. TYSABRI [Suspect]
     Route: 042
     Dates: start: 20120330

REACTIONS (1)
  - NEUROPATHY PERIPHERAL [None]
